FAERS Safety Report 5192184-5 (Version None)
Quarter: 2006Q4

REPORT INFORMATION
  Report Type: 
  Country: None (occurrence: None)
  Receive Date: 20061220
  Receipt Date: 20061212
  Transmission Date: 20070319
  Serious: Yes (Life-Threatening)
  Sender: FDA-Public Use
  Company Number: HQWYE166114DEC06

PATIENT
  Age: 29 Year
  Sex: Female

DRUGS (13)
  1. MYLOTARG [Suspect]
     Indication: ACUTE MYELOID LEUKAEMIA
     Dosage: 9 MG/M^2 1X PER 1 DAY; INTRAVENOUS DRIP;
     Route: 041
     Dates: start: 20060621, end: 20060621
  2. MYLOTARG [Suspect]
     Indication: DISEASE RECURRENCE
     Dosage: 9 MG/M^2 1X PER 1 DAY; INTRAVENOUS DRIP;
     Route: 041
     Dates: start: 20060621, end: 20060621
  3. MYLOTARG [Suspect]
     Indication: ACUTE MYELOID LEUKAEMIA
     Dosage: 9 MG/M^2 1X PER 1 DAY; INTRAVENOUS DRIP;
     Route: 041
     Dates: start: 20060705, end: 20060705
  4. MYLOTARG [Suspect]
     Indication: DISEASE RECURRENCE
     Dosage: 9 MG/M^2 1X PER 1 DAY; INTRAVENOUS DRIP;
     Route: 041
     Dates: start: 20060705, end: 20060705
  5. ETOPOSIDE [Concomitant]
  6. VFEND [Concomitant]
  7. CEFTAZIDIME [Concomitant]
  8. AMIKACIN SULFATE [Concomitant]
  9. MEROPEN (MEROPENEM) [Concomitant]
  10. TARGOCID [Concomitant]
  11. SULFAMETHOXAZOLE + TRIMETHOPRIM [Concomitant]
  12. POLYMYXIN B SULFATE [Concomitant]
  13. URSO (URSODEOXYCHOLIC ACID) [Concomitant]

REACTIONS (11)
  - ACUTE MYELOID LEUKAEMIA [None]
  - ANAEMIA [None]
  - C-REACTIVE PROTEIN INCREASED [None]
  - CONDITION AGGRAVATED [None]
  - DISEASE PROGRESSION [None]
  - HERPES ZOSTER [None]
  - MALAISE [None]
  - PLATELET COUNT DECREASED [None]
  - PLEURAL EFFUSION [None]
  - PNEUMONIA [None]
  - PYREXIA [None]
